FAERS Safety Report 6315736-5 (Version None)
Quarter: 2009Q3

REPORT INFORMATION
  Report Type: 
  Country: None (occurrence: None)
  Receive Date: 20090819
  Receipt Date: 20081120
  Transmission Date: 20100115
  Serious: No
  Sender: FDA-Public Use
  Company Number: GB-BAUSCH-2008BL005026

PATIENT
  Age: 43 Year
  Sex: Female
  Weight: 45 kg

DRUGS (3)
  1. CROMOLYN SODIUM [Suspect]
     Indication: HYPERSENSITIVITY
     Route: 045
     Dates: start: 20080816, end: 20081101
  2. FLONASE [Concomitant]
     Indication: HYPERSENSITIVITY
  3. ADVIL [Concomitant]
     Route: 048

REACTIONS (2)
  - EPISTAXIS [None]
  - SINUSITIS [None]
